FAERS Safety Report 14585238 (Version 2)
Quarter: 2018Q1

REPORT INFORMATION
  Report Type: Spontaneous
  Country: DE (occurrence: DE)
  Receive Date: 20180301
  Receipt Date: 20180323
  Transmission Date: 20180509
  Serious: Yes (Other)
  Sender: FDA-Public Use
  Company Number: DE-AUROBINDO-AUR-APL-2018-007880

PATIENT
  Age: 79 Year
  Sex: Female
  Weight: 78 kg

DRUGS (2)
  1. RAMIPRIL-ISIS 2,5 MG TABLET [Suspect]
     Active Substance: HYDROCHLOROTHIAZIDE\RAMIPRIL
     Indication: HYPERTENSION
     Dosage: 2.5 MILLIGRAM, DAILY
     Route: 048
     Dates: start: 201801
  2. FUROSEMID                          /00032601/ [Concomitant]
     Active Substance: FUROSEMIDE
     Indication: CARDIAC FAILURE CHRONIC
     Dosage: 20 MILLIGRAM
     Route: 048
     Dates: start: 201801

REACTIONS (2)
  - Diplopia [Not Recovered/Not Resolved]
  - Ophthalmoplegia [Not Recovered/Not Resolved]

NARRATIVE: CASE EVENT DATE: 20180211
